FAERS Safety Report 7593254-4 (Version None)
Quarter: 2011Q3

REPORT INFORMATION
  Report Type: 
  Country: None (occurrence: None)
  Receive Date: 20110706
  Receipt Date: 20110623
  Transmission Date: 20111222
  Serious: Yes (Hospitalization)
  Sender: FDA-Public Use
  Company Number: NL-PFIZER INC-2005107657

PATIENT
  Age: 83 Year
  Sex: Female

DRUGS (7)
  1. FUROSEMIDE [Concomitant]
     Route: 048
  2. DIHYDRAL [Concomitant]
     Route: 048
  3. CALCICHEW [Concomitant]
     Route: 048
  4. SUNITINIB MALATE [Suspect]
     Indication: GASTROINTESTINAL STROMAL TUMOUR
     Dosage: 50 MG CYCLIC, 4 OF 6 WEEKS
     Route: 048
     Dates: start: 20050701, end: 20050728
  5. MIXTARD HUMAN 70/30 [Concomitant]
     Dates: start: 19800101
  6. PANTOPRAZOLE [Concomitant]
     Route: 048
  7. TRIMETHOPRIM [Concomitant]
     Route: 048
     Dates: start: 20050722

REACTIONS (1)
  - ATRIAL FLUTTER [None]
